FAERS Safety Report 9171233 (Version 1)
Quarter: 2013Q1

REPORT INFORMATION
  Report Type: Report from Study
  Country: DE (occurrence: DE)
  Receive Date: 20130319
  Receipt Date: 20130319
  Transmission Date: 20140127
  Serious: Yes (Other)
  Sender: FDA-Public Use
  Company Number: DE-EISAI INC-E2007-01105-SOL-DE

PATIENT
  Age: 10 Year
  Sex: Female
  Weight: 40 kg

DRUGS (6)
  1. FYCOMPA [Suspect]
     Indication: EPILEPSY
     Route: 048
     Dates: start: 20130215, end: 20130219
  2. FYCOMPA [Suspect]
     Route: 048
     Dates: start: 20130220, end: 20130222
  3. FRISIUM [Concomitant]
     Indication: EPILEPSY
     Dosage: 5-10 MG DAILY
     Route: 048
  4. LAMICTAL [Concomitant]
     Indication: EPILEPSY
     Dosage: 150 MG DAILY
     Route: 048
     Dates: end: 20130222
  5. LAMICTAL [Concomitant]
     Indication: CONVULSION
     Dosage: INCREASED DOSAGE
     Route: 048
     Dates: start: 20130223, end: 20130228
  6. KEPPRA [Concomitant]
     Indication: EPILEPSY
     Dosage: 3000 MG DAILY
     Route: 048

REACTIONS (3)
  - Drop attacks [Recovering/Resolving]
  - Off label use [Recovering/Resolving]
  - Multiple injuries [None]
